FAERS Safety Report 20199174 (Version 1)
Quarter: 2021Q4

REPORT INFORMATION
  Report Type: Spontaneous
  Country: US (occurrence: None)
  Receive Date: 20211216
  Receipt Date: 20211216
  Transmission Date: 20220303
  Serious: Yes (Death)
  Sender: FDA-Public Use
  Company Number: None

PATIENT
  Age: 77 Year
  Sex: Male

DRUGS (13)
  1. TEMOZOLOMIDE [Suspect]
     Active Substance: TEMOZOLOMIDE
     Indication: Brain neoplasm malignant
     Dosage: FREQUENCY : AT BEDTIME;  TAKE ONE 100 MG CAPSULE ALONG WITH TWO 5 MG CAPSULES (TOTAL 110 MG) BY MOUT
     Route: 048
     Dates: start: 20211025, end: 20211130
  2. TEMOZOLOMIDE [Suspect]
     Active Substance: TEMOZOLOMIDE
     Dosage: FREQUENCY : AT BEDTIME;?
     Route: 048
  3. ATORVASTATIN [Concomitant]
     Active Substance: ATORVASTATIN
  4. CALCIUM\VITAMIN D [Concomitant]
     Active Substance: CALCIUM\VITAMIN D
  5. DILTIAZEM [Concomitant]
     Active Substance: DILTIAZEM
  6. ELIQUIS [Concomitant]
     Active Substance: APIXABAN
  7. FUROSEMIDE [Concomitant]
     Active Substance: FUROSEMIDE
  8. METOPROL SUC [Concomitant]
  9. MULTIPLE VIT [Concomitant]
  10. PANTOPRAZOLE [Concomitant]
     Active Substance: PANTOPRAZOLE
  11. PREDNISONE [Concomitant]
     Active Substance: PREDNISONE
  12. TEMOZOLOMIDE [Concomitant]
     Active Substance: TEMOZOLOMIDE
  13. TROSPIUM CHLORIDE [Concomitant]
     Active Substance: TROSPIUM CHLORIDE

REACTIONS (1)
  - Death [None]

NARRATIVE: CASE EVENT DATE: 20211130
